FAERS Safety Report 22239514 (Version 1)
Quarter: 2023Q2

REPORT INFORMATION
  Report Type: Spontaneous
  Country: None (occurrence: DE)
  Receive Date: 20230421
  Receipt Date: 20230421
  Transmission Date: 20230722
  Serious: Yes (Hospitalization)
  Sender: FDA-Public Use
  Company Number: DE-B.Braun Medical Inc.-2140653

PATIENT
  Age: 75 Year
  Sex: Female
  Weight: 72 kg

DRUGS (6)
  1. POTASSIUM CHLORIDE [Suspect]
     Active Substance: POTASSIUM CHLORIDE
  2. RAMIPRIL [Suspect]
     Active Substance: RAMIPRIL
  3. BISOPROLOL. [Suspect]
     Active Substance: BISOPROLOL FUMARATE
  4. TORSEMIDE [Suspect]
     Active Substance: TORSEMIDE
  5. AMLODIPINE BESYLATE [Suspect]
     Active Substance: AMLODIPINE BESYLATE
  6. EDOXABAN [Suspect]
     Active Substance: EDOXABAN

REACTIONS (11)
  - Anaemia [Unknown]
  - Atrial fibrillation [Unknown]
  - Tachycardia [Unknown]
  - Arrhythmia [Unknown]
  - Renal impairment [Unknown]
  - Gait disturbance [Unknown]
  - Fall [Unknown]
  - Electrocardiogram abnormal [Unknown]
  - General physical health deterioration [Unknown]
  - Condition aggravated [Unknown]
  - Medication error [Unknown]
